FAERS Safety Report 5936170-3 (Version None)
Quarter: 2008Q4

REPORT INFORMATION
  Report Type: 
  Country: None (occurrence: None)
  Receive Date: 20081030
  Receipt Date: 20081021
  Transmission Date: 20090506
  Serious: Yes (Other)
  Sender: FDA-Public Use
  Company Number: AU-PFIZER INC-2008088995

PATIENT
  Sex: Male

DRUGS (5)
  1. VIAGRA [Suspect]
  2. ACETYLSALICYLIC ACID SRT [Concomitant]
  3. SIMVASTATIN [Concomitant]
  4. ACTONEL [Concomitant]
  5. TRITACE [Concomitant]

REACTIONS (2)
  - NIGHT SWEATS [None]
  - PNEUMONIA [None]
